FAERS Safety Report 19447971 (Version 1)
Quarter: 2021Q2

REPORT INFORMATION
  Report Type: Spontaneous
  Country: US (occurrence: US)
  Receive Date: 20210621
  Receipt Date: 20210621
  Transmission Date: 20210717
  Serious: No
  Sender: FDA-Public Use
  Company Number: None

PATIENT
  Age: 62 Year
  Sex: Male
  Weight: 135 kg

DRUGS (1)
  1. BUPROPION (BUPROPION HCL 300MG 24HR TAB,SA) [Suspect]
     Active Substance: BUPROPION HYDROCHLORIDE
     Dosage: IN THE MORNING
     Route: 048
     Dates: start: 20210329, end: 20210409

REACTIONS (1)
  - Seizure [None]
